FAERS Safety Report 6753936-0 (Version None)
Quarter: 2010Q2

REPORT INFORMATION
  Report Type: 
  Country: None (occurrence: None)
  Receive Date: 20100603
  Receipt Date: 20100528
  Transmission Date: 20101027
  Serious: Yes (Death)
  Sender: FDA-Public Use
  Company Number: A0793582A

PATIENT
  Age: 59 Year
  Sex: Female
  Weight: 61.4 kg

DRUGS (19)
  1. AVANDIA [Suspect]
     Dosage: 8MG PER DAY
     Route: 048
     Dates: start: 20001201, end: 20051124
  2. METFORMIN [Concomitant]
  3. AMARYL [Concomitant]
  4. ZOCOR [Concomitant]
  5. SYNTHROID [Concomitant]
  6. DIOVAN [Concomitant]
  7. LOTREL [Concomitant]
  8. FOSAMAX [Concomitant]
  9. TRICOR [Concomitant]
  10. PLETAL [Concomitant]
  11. BEXTRA [Concomitant]
  12. LIPITOR [Concomitant]
     Dates: end: 20051122
  13. CELEBREX [Concomitant]
  14. NEURONTIN [Concomitant]
  15. OXYCONTIN [Concomitant]
  16. DARVOCET [Concomitant]
  17. LORTAB [Concomitant]
  18. SYNTHROID [Concomitant]
  19. NIASPAN [Concomitant]
     Dates: end: 20051122

REACTIONS (2)
  - CAROTID ARTERY DISEASE [None]
  - MYOCARDIAL INFARCTION [None]
